FAERS Safety Report 6808980-1 (Version None)
Quarter: 2010Q2

REPORT INFORMATION
  Report Type: 
  Country: None (occurrence: None)
  Receive Date: 20100630
  Receipt Date: 20100406
  Transmission Date: 20101027
  Serious: No
  Sender: FDA-Public Use
  Company Number: US-PFIZER INC-2009251220

PATIENT
  Sex: Female

DRUGS (5)
  1. ZYVOX [Suspect]
  2. CELEBREX [Suspect]
     Indication: BACK DISORDER
     Dosage: 200 MG, 1X/DAY
  3. CELEBREX [Suspect]
     Indication: ARTHROPATHY
  4. CELEBREX [Suspect]
     Indication: NECK PAIN
  5. CELEBREX [Suspect]
     Indication: OSTEOARTHRITIS

REACTIONS (2)
  - ABDOMINAL DISCOMFORT [None]
  - DIARRHOEA [None]
